FAERS Safety Report 13093807 (Version 2)
Quarter: 2017Q1

REPORT INFORMATION
  Report Type: Report from Study
  Country: US (occurrence: US)
  Receive Date: 20170106
  Receipt Date: 20170312
  Transmission Date: 20170428
  Serious: No
  Sender: FDA-Public Use
  Company Number: GXBR2016US003648

PATIENT
  Sex: Female
  Weight: 72.56 kg

DRUGS (3)
  1. OMNITROPE [Suspect]
     Active Substance: SOMATROPIN
     Indication: DWARFISM
     Dosage: UNK DF, QD
     Route: 058
  2. CLARITIN-D 12 HOUR [Concomitant]
     Active Substance: LORATADINE\PSEUDOEPHEDRINE SULFATE
     Indication: PRODUCT USED FOR UNKNOWN INDICATION
     Dosage: UNK DF, UNK
     Route: 065
  3. FOCALIN XR [Concomitant]
     Active Substance: DEXMETHYLPHENIDATE HYDROCHLORIDE
     Indication: PRODUCT USED FOR UNKNOWN INDICATION
     Dosage: UNK DF, UNK
     Route: 065

REACTIONS (1)
  - Incorrect dose administered by device [Not Recovered/Not Resolved]
